FAERS Safety Report 4822054-0 (Version None)
Quarter: 2005Q4

REPORT INFORMATION
  Report Type: 
  Country: None (occurrence: None)
  Receive Date: 20051103
  Receipt Date: 20051021
  Transmission Date: 20060501
  Serious: Yes (Other)
  Sender: FDA-Public Use
  Company Number: 2005-DE-04396GD

PATIENT

DRUGS (4)
  1. ZIDOVUDINE [Suspect]
     Indication: HIV INFECTION
  2. RITONAVIR (RITONAVIR) [Suspect]
     Indication: HIV INFECTION
     Dosage: 200 MG (SEE TEXT, BID)
  3. AMPRENAVIR (AMPRENAVIR) [Suspect]
     Indication: HIV INFECTION
     Dosage: 1200 MG (SEE TEXT, BID)
  4. LAMIVUDINE [Suspect]
     Indication: HIV INFECTION

REACTIONS (1)
  - DRUG INEFFECTIVE [None]
